FAERS Safety Report 4360648-X (Version None)
Quarter: 2004Q2

REPORT INFORMATION
  Report Type: 
  Country: None (occurrence: None)
  Receive Date: 20040518
  Receipt Date: 20040518
  Transmission Date: 20050107
  Serious: Yes (Hospitalization)
  Sender: FDA-Public Use
  Company Number: None

PATIENT
  Sex: Male

DRUGS (1)
  1. METHYLPREDNISOLONE [Suspect]
     Indication: POSTOPERATIVE INFECTION
     Dosage: 40 MG IV Q6H
     Route: 042
     Dates: start: 20041123

REACTIONS (1)
  - BLOOD GLUCOSE INCREASED [None]
